FAERS Safety Report 14150884 (Version 1)
Quarter: 2017Q4

REPORT INFORMATION
  Report Type: Spontaneous
  Country: IN (occurrence: IN)
  Receive Date: 20171102
  Receipt Date: 20171102
  Transmission Date: 20180321
  Serious: Yes (Hospitalization, Other)
  Sender: FDA-Public Use
  Company Number: IN-CIPLA LTD.-2017IN19104

PATIENT

DRUGS (6)
  1. ATORVASTATIN [Suspect]
     Active Substance: ATORVASTATIN
     Dosage: 20 MG, ONCE AFTER DINNER
     Route: 065
     Dates: start: 201611, end: 201612
  2. ACETYLSALICYLIC ACID [Concomitant]
     Active Substance: ASPIRIN
     Dosage: UNK, DAILY AFTER LUNCH
     Route: 048
     Dates: start: 201611
  3. METOPROLOL. [Suspect]
     Active Substance: METOPROLOL
     Dosage: 100 MG, DAILY
     Route: 065
     Dates: start: 201612, end: 2017
  4. CLOPIDOGREL [Concomitant]
     Active Substance: CLOPIDOGREL BISULFATE
     Dosage: UNK, DAILY AFTER LUNCH
     Route: 048
     Dates: start: 201611, end: 20161228
  5. METOPROLOL. [Suspect]
     Active Substance: METOPROLOL
     Dosage: 25 MG, DAILY, IN 2 DIVIDED DOSES
     Route: 065
     Dates: start: 201611, end: 20161207
  6. TICAGRELOR. [Concomitant]
     Active Substance: TICAGRELOR
     Dosage: 90 MG, TWO TIMES AFTER MEALS
     Route: 065
     Dates: start: 201611, end: 20161228

REACTIONS (3)
  - Myalgia [Unknown]
  - Drug-induced liver injury [Recovering/Resolving]
  - Hepatic encephalopathy [Recovering/Resolving]

NARRATIVE: CASE EVENT DATE: 201612
